FAERS Safety Report 23182787 (Version 1)
Quarter: 2023Q4

REPORT INFORMATION
  Report Type: Spontaneous
  Country: US (occurrence: None)
  Receive Date: 20231114
  Receipt Date: 20231114
  Transmission Date: 20240110
  Serious: Yes (Other)
  Sender: FDA-Public Use
  Company Number: None

PATIENT
  Age: 22 Year
  Sex: Female
  Weight: 67.5 kg

DRUGS (7)
  1. PROVERA [Suspect]
     Active Substance: MEDROXYPROGESTERONE ACETATE
     Indication: Infertility
     Dosage: OTHER QUANTITY : 1 TABLET(S);?OTHER FREQUENCY : 1 DAILY FOR 10 DAY;?
     Route: 048
  2. PROVERA [Suspect]
     Active Substance: MEDROXYPROGESTERONE ACETATE
     Indication: Polycystic ovarian syndrome
  3. LEVOTHYROXINE [Concomitant]
     Active Substance: LEVOTHYROXINE
  4. LETROZOLE [Concomitant]
     Active Substance: LETROZOLE
  5. Ovulation indicator tests [Concomitant]
  6. General prenatal vitamin [Concomitant]
  7. vitamin D supplements [Concomitant]

REACTIONS (1)
  - Decidual cast [None]

NARRATIVE: CASE EVENT DATE: 20230301
